FAERS Safety Report 22253856 (Version 5)
Quarter: 2023Q4

REPORT INFORMATION
  Report Type: Report from Study
  Country: BR (occurrence: BR)
  Receive Date: 20230426
  Receipt Date: 20231229
  Transmission Date: 20240110
  Serious: Yes (Other)
  Sender: FDA-Public Use
  Company Number: BR-002147023-NVSC2023BR092533

PATIENT
  Sex: Male

DRUGS (3)
  1. KISQALI [Suspect]
     Active Substance: RIBOCICLIB
     Indication: Breast cancer
     Dosage: UNK
     Route: 065
     Dates: start: 202210
  2. LETROZOLE [Suspect]
     Active Substance: LETROZOLE
     Indication: Product used for unknown indication
     Dosage: UNK
     Route: 065
  3. CIPROFLOXACIN [Suspect]
     Active Substance: CIPROFLOXACIN
     Indication: Urinary tract infection
     Dosage: UNK
     Route: 065

REACTIONS (26)
  - Shock [Unknown]
  - Spinal cord disorder [Not Recovered/Not Resolved]
  - Spinal cord neoplasm [Unknown]
  - Paraplegia [Not Recovered/Not Resolved]
  - Mental impairment [Unknown]
  - Blood cholesterol increased [Unknown]
  - Blood cholesterol abnormal [Recovered/Resolved]
  - Upper limb fracture [Unknown]
  - Osteoporosis [Unknown]
  - Bone pain [Unknown]
  - Arthralgia [Unknown]
  - Paraesthesia [Unknown]
  - Pain [Unknown]
  - Poor peripheral circulation [Unknown]
  - Anxiety [Unknown]
  - Therapeutic response unexpected [Unknown]
  - Product dose omission issue [Unknown]
  - Nausea [Unknown]
  - Urinary tract infection [Recovering/Resolving]
  - Malaise [Unknown]
  - Pyrexia [Recovered/Resolved]
  - Oropharyngeal pain [Recovering/Resolving]
  - Influenza [Recovering/Resolving]
  - Peripheral swelling [Recovering/Resolving]
  - Joint swelling [Recovering/Resolving]
  - Drug ineffective [Unknown]
